FAERS Safety Report 5142071-3 (Version None)
Quarter: 2006Q4

REPORT INFORMATION
  Report Type: 
  Country: None (occurrence: None)
  Receive Date: 20061102
  Receipt Date: 20061025
  Transmission Date: 20070319
  Serious: Yes (Other)
  Sender: FDA-Public Use
  Company Number: US-JNJFOC-20061006150

PATIENT
  Age: 47 Year
  Sex: Male

DRUGS (6)
  1. INFLIXIMAB [Suspect]
     Route: 042
  2. INFLIXIMAB [Suspect]
     Indication: RHEUMATOID ARTHRITIS
     Route: 042
  3. HYDROXYCHLOROQUINE SULFATE [Concomitant]
  4. METHOTREXATE [Concomitant]
  5. LATANOPROST [Concomitant]
     Indication: GLAUCOMA
  6. CARTEOLOL HCL [Concomitant]
     Indication: GLAUCOMA

REACTIONS (1)
  - IIIRD NERVE PARALYSIS [None]
